FAERS Safety Report 6006287-6 (Version None)
Quarter: 2008Q4

REPORT INFORMATION
  Report Type: 
  Country: None (occurrence: None)
  Receive Date: 20081215
  Receipt Date: 20081209
  Transmission Date: 20090506
  Serious: Yes (Life-Threatening, Other)
  Sender: FDA-Public Use
  Company Number: TUK2008A00157

PATIENT
  Age: 68 Year
  Sex: Male

DRUGS (8)
  1. ACTOS [Suspect]
     Dosage: (15 MG) ORAL
     Route: 048
     Dates: start: 20080310, end: 20081111
  2. AMLODIPINE [Suspect]
  3. ALFUZOSIN HYDROCHLORIDE (ALFUZOSIN HYDROCHLORIDE) [Concomitant]
  4. ASPIRIN [Concomitant]
  5. LOSARTAN POTASSIUM [Concomitant]
  6. METFORMIN HCL [Concomitant]
  7. OMEPRAZOLE [Concomitant]
  8. ROSUVASTATIN CALCIUM [Concomitant]

REACTIONS (3)
  - ANAEMIA [None]
  - CARDIAC FAILURE CONGESTIVE [None]
  - COUGH [None]
